FAERS Safety Report 10808330 (Version 1)
Quarter: 2015Q1

REPORT INFORMATION
  Report Type: Report from Study
  Country: US (occurrence: US)
  Receive Date: 20150217
  Receipt Date: 20150217
  Transmission Date: 20150721
  Serious: No
  Sender: FDA-Public Use
  Company Number: US-ABBVIE-14K-163-1220401-00

PATIENT
  Age: 53 Year
  Sex: Female

DRUGS (8)
  1. HUMIRA [Suspect]
     Active Substance: ADALIMUMAB
     Indication: COLITIS ULCERATIVE
     Dates: start: 20140124
  2. TURMERIC [Concomitant]
     Active Substance: TURMERIC
     Indication: ANTIOXIDANT THERAPY
  3. LIALDA [Concomitant]
     Active Substance: MESALAMINE
     Indication: COLITIS
     Dosage: 3 PILLS ONCE DAILY
  4. RHODIOLA [Concomitant]
     Active Substance: HERBALS
     Indication: NUTRITIONAL SUPPLEMENTATION
  5. OREGANO OIL [Concomitant]
     Indication: NUTRITIONAL SUPPLEMENTATION
  6. MULTIVITAMIN [Concomitant]
     Active Substance: VITAMINS
     Indication: VITAMIN SUPPLEMENTATION
  7. TURMERIC [Concomitant]
     Active Substance: TURMERIC
     Indication: DEPRESSION
     Dosage: ONE OR TWO DAILY AS AN ANTIOXIDANT
  8. MILK THISTLE [Concomitant]
     Active Substance: MILK THISTLE
     Indication: NUTRITIONAL SUPPLEMENTATION
     Dosage: 175 MG 2 IN MORNING AND 1 AT NIGHT

REACTIONS (9)
  - Injection site erythema [Recovered/Resolved]
  - Chills [Unknown]
  - Injection site induration [Recovered/Resolved]
  - Haematoma [Unknown]
  - Injection site induration [Recovering/Resolving]
  - Pain in extremity [Unknown]
  - Abdominal pain upper [Not Recovered/Not Resolved]
  - Injection site erythema [Recovering/Resolving]
  - Injection site pruritus [Unknown]

NARRATIVE: CASE EVENT DATE: 201403
